FAERS Safety Report 9716937 (Version 1)
Quarter: 2013Q4

REPORT INFORMATION
  Report Type: Spontaneous
  Country: US (occurrence: US)
  Receive Date: 20131127
  Receipt Date: 20131127
  Transmission Date: 20140711
  Serious: No
  Sender: FDA-Public Use
  Company Number: US-GILEAD-2009-0019955

PATIENT
  Age: 75 Year
  Sex: Male
  Weight: 81.65 kg

DRUGS (1)
  1. LETAIRIS [Suspect]
     Indication: PULMONARY HYPERTENSION
     Route: 048
     Dates: start: 20080904

REACTIONS (3)
  - Hypersomnia [Unknown]
  - Local swelling [Unknown]
  - Nasal congestion [Unknown]
